FAERS Safety Report 8306986-7 (Version None)
Quarter: 2012Q2

REPORT INFORMATION
  Report Type: 
  Country: None (occurrence: None)
  Receive Date: 20120424
  Receipt Date: 20120410
  Transmission Date: 20120825
  Serious: Yes (Other)
  Sender: FDA-Public Use
  Company Number: PHHY2012KR002441

PATIENT
  Sex: Female
  Weight: 44 kg

DRUGS (2)
  1. EXJADE [Suspect]
     Route: 048
     Dates: end: 20120201
  2. EXJADE [Suspect]
     Indication: IRON OVERLOAD
     Route: 048
     Dates: start: 20100331

REACTIONS (2)
  - ARTHRALGIA [None]
  - ARTHRITIS [None]
